FAERS Safety Report 23383546 (Version 2)
Quarter: 2024Q1

REPORT INFORMATION
  Report Type: Spontaneous
  Country: US (occurrence: US)
  Receive Date: 20240109
  Receipt Date: 20240202
  Transmission Date: 20240410
  Serious: No
  Sender: FDA-Public Use
  Company Number: US-SA-SAC20240103000040

PATIENT
  Age: 35 Year
  Sex: Female

DRUGS (1)
  1. DUPIXENT [Suspect]
     Active Substance: DUPILUMAB
     Indication: Eosinophilic oesophagitis
     Dosage: 300 MG, QW
     Route: 058

REACTIONS (5)
  - Pigmentation disorder [Unknown]
  - Injection site erythema [Recovering/Resolving]
  - Injection site rash [Unknown]
  - Injection site pruritus [Recovered/Resolved]
  - Injection site warmth [Recovering/Resolving]
